FAERS Safety Report 5015965-7 (Version None)
Quarter: 2006Q2

REPORT INFORMATION
  Report Type: 
  Country: None (occurrence: None)
  Receive Date: 20060531
  Receipt Date: 20060531
  Transmission Date: 20061013
  Serious: Yes (Hospitalization)
  Sender: FDA-Public Use
  Company Number: None

PATIENT
  Sex: Female
  Weight: 70 kg

DRUGS (2)
  1. PHENERGAN [Suspect]
     Indication: NAUSEA
     Dosage: PHENERGAN 25MG PRN FOR NAUSEA IV
     Route: 042
     Dates: start: 20060424, end: 20060425
  2. MORPHINE [Suspect]
     Indication: PAIN
     Dosage: MORHINE  2MG DRIP  IV DRIP
     Route: 041
     Dates: start: 20060424, end: 20060425

REACTIONS (7)
  - CONDITION AGGRAVATED [None]
  - DEPRESSED LEVEL OF CONSCIOUSNESS [None]
  - DRUG INTERACTION [None]
  - NAUSEA [None]
  - PAIN [None]
  - RESPIRATORY RATE DECREASED [None]
  - VOMITING [None]
